FAERS Safety Report 7376013-7 (Version None)
Quarter: 2011Q1

REPORT INFORMATION
  Report Type: 
  Country: None (occurrence: None)
  Receive Date: 20110315
  Receipt Date: 20110301
  Transmission Date: 20110831
  Serious: Yes (Hospitalization)
  Sender: FDA-Public Use
  Company Number: 2010SP018898

PATIENT
  Age: 47 Year
  Sex: Male
  Weight: 146.0582 kg

DRUGS (18)
  1. AMBIEN [Concomitant]
  2. NEURONTIN [Concomitant]
  3. SPIRONOLACTONE [Concomitant]
  4. NORTRIPTYLINE HCL [Concomitant]
  5. ASPIRIN [Concomitant]
  6. IBUPROFEN [Concomitant]
  7. CELEXA [Concomitant]
  8. ZOLOFT [Concomitant]
  9. PEG-INTRON [Suspect]
     Indication: HEPATITIS C
     Dosage: 150 MCG, SC
     Route: 058
     Dates: start: 20100127, end: 20100326
  10. REBETOL [Suspect]
     Indication: HEPATITIS C
     Dosage: 14500 MG, PO
     Route: 048
     Dates: start: 20100127, end: 20100326
  11. REMICADE [Suspect]
     Indication: HEPATITIS C
     Dosage: IV
     Route: 042
     Dates: start: 20100127, end: 20100326
  12. POTASSIUM [Concomitant]
  13. OMEPRAZOLE [Concomitant]
  14. NORTRIPTYLINE HCL [Concomitant]
  15. HYDROCODONE [Concomitant]
  16. FLEXERIL [Concomitant]
  17. NADOLOL [Concomitant]
  18. LEXAPRO [Concomitant]

REACTIONS (38)
  - LUNG NEOPLASM [None]
  - HYPERKALAEMIA [None]
  - RENAL FAILURE ACUTE [None]
  - GASTRITIS [None]
  - OCCULT BLOOD POSITIVE [None]
  - SPLENOMEGALY [None]
  - HAEMOLYSIS [None]
  - GENERAL PHYSICAL HEALTH DETERIORATION [None]
  - CONFUSIONAL STATE [None]
  - HEPATIC ENCEPHALOPATHY [None]
  - LEUKOCYTOSIS [None]
  - MENTAL STATUS CHANGES [None]
  - ABSCESS LIMB [None]
  - ASTHENIA [None]
  - GASTROINTESTINAL HAEMORRHAGE [None]
  - HYPERBILIRUBINAEMIA [None]
  - GENERALISED OEDEMA [None]
  - VARICES OESOPHAGEAL [None]
  - SEPTIC EMBOLUS [None]
  - GASTROINTESTINAL EROSION [None]
  - GASTROINTESTINAL VASCULAR MALFORMATION [None]
  - ANAEMIA OF CHRONIC DISEASE [None]
  - AMMONIA INCREASED [None]
  - PYREXIA [None]
  - COLONIC POLYP [None]
  - STAPHYLOCOCCAL BACTERAEMIA [None]
  - INTESTINAL ISCHAEMIA [None]
  - PORTAL HYPERTENSIVE GASTROPATHY [None]
  - ATRIAL FIBRILLATION [None]
  - GASTROINTESTINAL INFLAMMATION [None]
  - PULMONARY CAVITATION [None]
  - BLOOD LACTATE DEHYDROGENASE INCREASED [None]
  - HAPTOGLOBIN DECREASED [None]
  - URINARY TRACT INFECTION STAPHYLOCOCCAL [None]
  - ASCITES [None]
  - HYPONATRAEMIA [None]
  - HAEMORRHOIDS [None]
  - RETICULOCYTE COUNT INCREASED [None]
